APPROVED DRUG PRODUCT: SERTRALINE HYDROCHLORIDE
Active Ingredient: SERTRALINE HYDROCHLORIDE
Strength: EQ 50MG BASE
Dosage Form/Route: TABLET;ORAL
Application: A077106 | Product #002
Applicant: ZYDUS WORLDWIDE DMCC
Approved: Feb 6, 2007 | RLD: No | RS: No | Type: DISCN